FAERS Safety Report 7098621-3 (Version None)
Quarter: 2010Q4

REPORT INFORMATION
  Report Type: 
  Country: None (occurrence: None)
  Receive Date: 20101112
  Receipt Date: 20090601
  Transmission Date: 20110411
  Serious: No
  Sender: FDA-Public Use
  Company Number: US-KINGPHARMUSA00001-K200900660

PATIENT
  Sex: Male
  Weight: 92.971 kg

DRUGS (4)
  1. SKELAXIN [Suspect]
     Indication: MUSCLE SPASMS
     Dosage: 800 MG, TID OR QID
     Route: 048
     Dates: start: 20090529, end: 20090529
  2. SKELAXIN [Suspect]
     Dosage: 800 MG AFTERNOON + 400 MG EVENING, ORAL
     Dates: start: 20090530, end: 20090530
  3. SKELAXIN [Suspect]
     Dosage: 400 MG IN THE EVENING, ONCE, ORAL
     Dates: start: 20090531, end: 20090531
  4. INDOMETHACIN [Concomitant]
     Indication: ANTIINFLAMMATORY THERAPY
     Dosage: 25 MG, QD
     Route: 048
     Dates: start: 20090529

REACTIONS (6)
  - DEPRESSED MOOD [None]
  - HEADACHE [None]
  - IRRITABILITY [None]
  - LETHARGY [None]
  - MOOD ALTERED [None]
  - PAROSMIA [None]
